FAERS Safety Report 4829226-X (Version None)
Quarter: 2005Q4

REPORT INFORMATION
  Report Type: 
  Country: None (occurrence: None)
  Receive Date: 20051028
  Receipt Date: 20050919
  Transmission Date: 20060501
  Serious: No
  Sender: FDA-Public Use
  Company Number: COT_0218_2005

PATIENT
  Age: 52 Year
  Sex: Male
  Weight: 81.6475 kg

DRUGS (7)
  1. VENTAVIS [Suspect]
     Indication: PULMONARY HYPERTENSION
     Dosage: 5 MCG 6XD IH
     Route: 055
     Dates: start: 20050627
  2. LANOXIN [Concomitant]
  3. NORVASC [Concomitant]
  4. TRACLEER [Concomitant]
  5. SILDENAFIL CITRATE [Concomitant]
  6. THALOMID [Concomitant]
  7. DECADRON [Concomitant]

REACTIONS (2)
  - DYSPNOEA [None]
  - RESPIRATORY TRACT IRRITATION [None]
